FAERS Safety Report 8864751 (Version 1)
Quarter: 2012Q4

REPORT INFORMATION
  Report Type: 
  Country: US (occurrence: US)
  Receive Date: 20121024
  Receipt Date: 20121024
  Transmission Date: 20130627
  Serious: No
  Sender: FDA-Public Use
  Company Number: US-AMGEN-USASP2011069171

PATIENT
  Age: 23 Year
  Sex: Female

DRUGS (3)
  1. ENBREL [Suspect]
     Indication: PRODUCT USED FOR UNKNOWN INDICATION
     Dosage: 50 mg, 2 times/wk
     Route: 058
  2. ABILIFY [Concomitant]
     Dosage: 15 mg, UNK
  3. MELATONIN [Concomitant]
     Dosage: 2.5 mg, UNK

REACTIONS (2)
  - Respiratory tract congestion [Unknown]
  - Rhinorrhoea [Unknown]
